FAERS Safety Report 25560596 (Version 1)
Quarter: 2025Q3

REPORT INFORMATION
  Report Type: Spontaneous
  Country: US (occurrence: US)
  Receive Date: 20250715
  Receipt Date: 20250715
  Transmission Date: 20251021
  Serious: No
  Sender: NOVO NORDISK
  Company Number: US-NOVOPROD-1389625

PATIENT
  Sex: Male

DRUGS (1)
  1. OZEMPIC [Suspect]
     Active Substance: SEMAGLUTIDE
     Indication: Product used for unknown indication

REACTIONS (7)
  - Pyrexia [Unknown]
  - Chills [Unknown]
  - Nausea [Unknown]
  - Retching [Unknown]
  - Incorrect dose administered [Unknown]
  - Product communication issue [Unknown]
  - Device issue [Unknown]
